FAERS Safety Report 8891033 (Version 2)
Quarter: 2012Q4

REPORT INFORMATION
  Report Type: 
  Country: US (occurrence: US)
  Receive Date: 20121107
  Receipt Date: 20121211
  Transmission Date: 20130627
  Serious: No
  Sender: FDA-Public Use
  Company Number: US-ASTRAZENECA-2012SE79373

PATIENT
  Age: 58 Year
  Sex: Female

DRUGS (2)
  1. NEXIUM [Suspect]
     Route: 048
  2. ANTI-ANXIETY MEDICATION [Concomitant]

REACTIONS (7)
  - Fibromyalgia [Unknown]
  - Pharyngeal erythema [Unknown]
  - Nasal mucosal disorder [Unknown]
  - Gastrooesophageal reflux disease [Unknown]
  - Pain [Unknown]
  - Erythema [Unknown]
  - Drug dose omission [Unknown]
